FAERS Safety Report 11247061 (Version 1)
Quarter: 2015Q3

REPORT INFORMATION
  Report Type: Spontaneous
  Country: US (occurrence: US)
  Receive Date: 20150708
  Receipt Date: 20150708
  Transmission Date: 20151125
  Serious: No
  Sender: FDA-Public Use
  Company Number: US-009507513-1506USA013803

PATIENT
  Age: 73 Year
  Sex: Male

DRUGS (1)
  1. CLINORIL [Suspect]
     Active Substance: SULINDAC
     Dosage: UNK
     Route: 048

REACTIONS (1)
  - Renal impairment [Unknown]
